FAERS Safety Report 7709497-2 (Version None)
Quarter: 2011Q3

REPORT INFORMATION
  Report Type: 
  Country: None (occurrence: None)
  Receive Date: 20110825
  Receipt Date: 20110823
  Transmission Date: 20111222
  Serious: Yes (Hospitalization, Other)
  Sender: FDA-Public Use
  Company Number: CA-ABBOTT-11P-028-0847693-00

PATIENT
  Sex: Female
  Weight: 63.56 kg

DRUGS (7)
  1. FOLIC ACID [Concomitant]
     Indication: VITAMIN SUPPLEMENTATION
     Dosage: 6/7 DAYS
     Route: 048
     Dates: start: 20080101
  2. OXYCODONE HCL [Concomitant]
     Indication: PAIN
     Dates: start: 20080101
  3. PREDNISONE [Concomitant]
     Indication: RHEUMATOID ARTHRITIS
     Route: 048
     Dates: start: 20080101
  4. TYLENOL XS [Concomitant]
     Indication: PAIN
     Dates: start: 20080101
  5. NAPROSYN [Concomitant]
     Indication: RHEUMATOID ARTHRITIS
     Route: 048
     Dates: start: 20080101
  6. METHOTREXATE [Concomitant]
     Indication: RHEUMATOID ARTHRITIS
     Route: 048
     Dates: start: 20080101
  7. HUMIRA [Suspect]
     Indication: RHEUMATOID ARTHRITIS
     Route: 058
     Dates: start: 20080724, end: 20110816

REACTIONS (1)
  - ARTHROPATHY [None]
